FAERS Safety Report 18619775 (Version 2)
Quarter: 2022Q1

REPORT INFORMATION
  Report Type: Spontaneous
  Country: US (occurrence: US)
  Receive Date: 20201215
  Receipt Date: 20220131
  Transmission Date: 20220424
  Serious: No
  Sender: FDA-Public Use
  Company Number: US-PFIZER INC-2020492697

PATIENT
  Age: 94 Year
  Sex: Female

DRUGS (3)
  1. XELJANZ XR [Suspect]
     Active Substance: TOFACITINIB CITRATE
     Indication: Rheumatoid arthritis
     Dosage: 11 MG, DAILY (ONE TAB DAILY)
  2. XELJANZ XR [Suspect]
     Active Substance: TOFACITINIB CITRATE
     Indication: Rheumatoid factor
  3. METHOTREXATE SODIUM [Suspect]
     Active Substance: METHOTREXATE SODIUM
     Dosage: UNK
     Dates: start: 201008, end: 201310

REACTIONS (6)
  - Product dose omission issue [Unknown]
  - Treatment failure [Unknown]
  - Liver disorder [Unknown]
  - Pain [Unknown]
  - Arthralgia [Recovering/Resolving]
  - Cough [Unknown]

NARRATIVE: CASE EVENT DATE: 20210101
